FAERS Safety Report 6124739-5 (Version None)
Quarter: 2009Q1

REPORT INFORMATION
  Report Type: 
  Country: None (occurrence: None)
  Receive Date: 20090319
  Receipt Date: 20090311
  Transmission Date: 20090719
  Serious: Yes (Other)
  Sender: FDA-Public Use
  Company Number: FR-TEVA-174746ISR

PATIENT
  Age: 43 Year
  Sex: Male

DRUGS (5)
  1. VALPROATE SEMISODIUM,TABLETS 500 MG [Suspect]
     Indication: DEPRESSION
     Route: 048
     Dates: start: 20080624, end: 20080722
  2. RISPERIDONE [Concomitant]
     Indication: DEPRESSION
     Route: 048
     Dates: start: 20060101
  3. MILNACIPRAN [Concomitant]
     Indication: DEPRESSION
     Route: 048
     Dates: start: 20060101
  4. CYAMEMAZINE [Concomitant]
     Indication: DEPRESSION
     Route: 048
     Dates: start: 20060101
  5. SULFASALAZINE [Concomitant]
     Route: 048

REACTIONS (2)
  - DEPRESSION [None]
  - SUICIDAL IDEATION [None]
